FAERS Safety Report 10159530 (Version 1)
Quarter: 2014Q2

REPORT INFORMATION
  Report Type: Spontaneous
  Country: US (occurrence: None)
  Receive Date: 20140506
  Receipt Date: 20140506
  Transmission Date: 20141212
  Serious: Yes (Death)
  Sender: FDA-Public Use
  Company Number: AUR-APL-2014-05237

PATIENT
  Age: 39 Year
  Sex: Male

DRUGS (2)
  1. METOPROLOL [Suspect]
     Indication: PRODUCT USED FOR UNKNOWN INDICATION
  2. DILTIAZEM HCL (DILTIAZEM HYDROCHLORIDE) [Suspect]
     Indication: PRODUCT USED FOR UNKNOWN INDICATION

REACTIONS (7)
  - Unresponsive to stimuli [None]
  - Cardiac arrest [None]
  - Brain oedema [None]
  - Laboratory test interference [None]
  - Pancreatitis [None]
  - Acute respiratory distress syndrome [None]
  - Overdose [None]
